FAERS Safety Report 8985025 (Version 2)
Quarter: 2013Q1

REPORT INFORMATION
  Report Type: Spontaneous
  Country: US (occurrence: US)
  Receive Date: 20121226
  Receipt Date: 20130124
  Transmission Date: 20140127
  Serious: Yes (Other)
  Sender: FDA-Public Use
  Company Number: US-BAYER-2012-134877

PATIENT
  Age: 36 Year
  Sex: Female
  Weight: 106.12 kg

DRUGS (3)
  1. MIRENA [Suspect]
     Indication: MENORRHAGIA
     Dosage: 20 MCG/24HR, CONT
     Route: 015
     Dates: start: 20121126, end: 20121126
  2. MIRENA [Suspect]
     Indication: CONTRACEPTION
  3. PAXIL [Concomitant]
     Dosage: 20 MG, 1 TABLET

REACTIONS (1)
  - Device dislocation [Recovered/Resolved]
